FAERS Safety Report 5616187-9 (Version None)
Quarter: 2008Q1

REPORT INFORMATION
  Report Type: 
  Country: None (occurrence: None)
  Receive Date: 20080201
  Receipt Date: 20080122
  Transmission Date: 20080703
  Serious: Yes (Hospitalization)
  Sender: FDA-Public Use
  Company Number: 2007BI025160

PATIENT
  Age: 25 Year
  Sex: Male

DRUGS (3)
  1. AVONEX [Suspect]
     Indication: MULTIPLE SCLEROSIS
     Dosage: 30 UG; QW; IM
     Route: 030
     Dates: start: 20030801
  2. METFORMIN HCL [Concomitant]
  3. LOTENSIN [Concomitant]

REACTIONS (3)
  - CEREBRAL DISORDER [None]
  - OPTIC NEURITIS [None]
  - VISUAL DISTURBANCE [None]
